FAERS Safety Report 6310844-7 (Version None)
Quarter: 2009Q3

REPORT INFORMATION
  Report Type: 
  Country: None (occurrence: None)
  Receive Date: 20090812
  Receipt Date: 20090730
  Transmission Date: 20100115
  Serious: Yes (Other)
  Sender: FDA-Public Use
  Company Number: 20090334

PATIENT
  Age: 42 Year
  Sex: Female
  Weight: 79 kg

DRUGS (1)
  1. VENOFER [Suspect]
     Dosage: 200MG/50 ML NS INTRAVENOUS DRIP
     Route: 041
     Dates: start: 20090723, end: 20090723

REACTIONS (1)
  - INFUSION SITE EXTRAVASATION [None]
